FAERS Safety Report 8242990-5 (Version None)
Quarter: 2012Q1

REPORT INFORMATION
  Report Type: 
  Country: None (occurrence: None)
  Receive Date: 20120329
  Receipt Date: 20120323
  Transmission Date: 20120608
  Serious: Yes (Hospitalization, Other)
  Sender: FDA-Public Use
  Company Number: FR-PFIZER INC-2012075775

PATIENT
  Age: 65 Year
  Sex: Female

DRUGS (2)
  1. LYRICA [Suspect]
     Indication: NEURALGIA
     Dosage: 500-600 MG DAILY
  2. ALCOHOL [Suspect]
     Dosage: UNK

REACTIONS (5)
  - INTENTIONAL OVERDOSE [None]
  - DELUSION [None]
  - AGGRESSION [None]
  - WITHDRAWAL SYNDROME [None]
  - SUICIDE ATTEMPT [None]
